FAERS Safety Report 9476134 (Version 2)
Quarter: 2013Q3

REPORT INFORMATION
  Report Type: Report from Study
  Country: US (occurrence: US)
  Receive Date: 20130826
  Receipt Date: 20130926
  Transmission Date: 20140515
  Serious: Yes (Other)
  Sender: FDA-Public Use
  Company Number: PHEH2013US017952

PATIENT
  Sex: Male

DRUGS (1)
  1. COARTEM [Suspect]
     Dosage: 20 MG, BID
     Route: 048

REACTIONS (3)
  - Lyme disease [Unknown]
  - Muscle spasms [Unknown]
  - Paraesthesia [Unknown]
